FAERS Safety Report 9790762 (Version 3)
Quarter: 2014Q1

REPORT INFORMATION
  Report Type: Report from Study
  Country: JP (occurrence: JP)
  Receive Date: 20131231
  Receipt Date: 20140325
  Transmission Date: 20141002
  Serious: Yes (Hospitalization)
  Sender: FDA-Public Use
  Company Number: JP-ASTRAZENECA-2013SE94215

PATIENT
  Age: 68 Year
  Sex: Female

DRUGS (16)
  1. AZD6474 [Suspect]
     Indication: THYROID CANCER
     Route: 048
     Dates: start: 20131126, end: 20131224
  2. AZD6474 [Suspect]
     Indication: THYROID CANCER
     Route: 048
     Dates: start: 20140121
  3. TELMISARTAN [Suspect]
     Indication: HYPERTENSION
     Route: 048
     Dates: start: 20131209, end: 20131224
  4. LEVOTHYROXINE SODIUM HYDRATE [Concomitant]
     Indication: POST PROCEDURAL HYPOTHYROIDISM
     Route: 048
  5. ROSUVASTATIN CALCIUM [Concomitant]
     Indication: HYPERLIPIDAEMIA
     Route: 048
  6. SPIRONOLACTONE [Concomitant]
     Indication: HYPERTENSION
     Route: 048
  7. ASPIRIN [Concomitant]
     Indication: CEREBRAL INFARCTION
     Route: 048
  8. LYSOZYME HYDROCHLORIDE [Concomitant]
     Indication: BRONCHITIS CHRONIC
     Route: 048
  9. L-CARBOCISTEINE [Concomitant]
     Indication: BRONCHITIS CHRONIC
     Route: 048
  10. MAGNESIUM OXIDE [Concomitant]
     Indication: HYPOMAGNESAEMIA
     Route: 048
     Dates: start: 20131118
  11. ALFACALCIDOL [Concomitant]
     Indication: HYPOPARATHYROIDISM
     Route: 048
     Dates: end: 20131202
  12. ALFACALCIDOL [Concomitant]
     Indication: HYPOCALCAEMIA
     Route: 048
     Dates: end: 20131202
  13. ALFACALCIDOL [Concomitant]
     Indication: HYPOPARATHYROIDISM
     Route: 048
     Dates: start: 20131203, end: 20131225
  14. ALFACALCIDOL [Concomitant]
     Indication: HYPOCALCAEMIA
     Route: 048
     Dates: start: 20131203, end: 20131225
  15. ALFACALCIDOL [Concomitant]
     Indication: HYPOPARATHYROIDISM
     Route: 048
     Dates: start: 20131226
  16. ALFACALCIDOL [Concomitant]
     Indication: HYPOCALCAEMIA
     Route: 048
     Dates: start: 20131226

REACTIONS (1)
  - Inappropriate antidiuretic hormone secretion [Recovering/Resolving]
